FAERS Safety Report 14772864 (Version 2)
Quarter: 2018Q2

REPORT INFORMATION
  Report Type: Spontaneous
  Country: US (occurrence: US)
  Receive Date: 20180418
  Receipt Date: 20180426
  Transmission Date: 20180711
  Serious: No
  Sender: FDA-Public Use
  Company Number: US-PFIZER INC-2018126679

PATIENT
  Age: 68 Year
  Sex: Male

DRUGS (2)
  1. ACYCLOVIR. [Concomitant]
     Active Substance: ACYCLOVIR
     Indication: ORAL HERPES
     Dosage: UNK UNK, AS NEEDED (PRN)
  2. SUTENT [Suspect]
     Active Substance: SUNITINIB MALATE
     Indication: RENAL CELL CARCINOMA STAGE III
     Dosage: 37.5 MG, CYCLIC (DAILY, 2 WEEKS ON/1 WEEK OFF)

REACTIONS (5)
  - Body temperature decreased [Unknown]
  - White blood cell count decreased [Unknown]
  - Flatulence [Recovering/Resolving]
  - Fatigue [Unknown]
  - Peripheral coldness [Unknown]
